FAERS Safety Report 5808187-0 (Version None)
Quarter: 2008Q3

REPORT INFORMATION
  Report Type: 
  Country: None (occurrence: None)
  Receive Date: 20080709
  Receipt Date: 20080627
  Transmission Date: 20090109
  Serious: Yes (Hospitalization, Other)
  Sender: FDA-Public Use
  Company Number: WAES 0805USA04673

PATIENT
  Age: 42 Year
  Sex: Female
  Weight: 49.8957 kg

DRUGS (9)
  1. CAP VORINOSTAT UNK [Suspect]
     Indication: ACUTE MYELOID LEUKAEMIA
     Dosage: 400 MG DAILY PO
     Route: 048
     Dates: start: 20080421, end: 20080504
  2. INJ DECITABINE UNK [Suspect]
     Indication: ACUTE MYELOID LEUKAEMIA
     Dosage: 20 MG/M[2] DAILY IV
     Route: 042
     Dates: start: 20080421, end: 20080425
  3. K-DUR [Concomitant]
  4. ASCORBIC ACID [Concomitant]
  5. METFORMIN HCL [Concomitant]
  6. METOPROLOL TARTRATE [Concomitant]
  7. POSACONAZOLE [Concomitant]
  8. VITAMIN B (UNSPECIFIED) [Concomitant]
  9. MULTI-VITAMINS [Concomitant]

REACTIONS (9)
  - ABDOMINAL PAIN [None]
  - BLOOD COUNT ABNORMAL [None]
  - CHOLELITHIASIS [None]
  - FEBRILE NEUTROPENIA [None]
  - INFECTION [None]
  - MYELOFIBROSIS [None]
  - NAUSEA [None]
  - PROCTALGIA [None]
  - VAGINAL HAEMORRHAGE [None]
